FAERS Safety Report 7984020-6 (Version None)
Quarter: 2011Q4

REPORT INFORMATION
  Report Type: 
  Country: None (occurrence: None)
  Receive Date: 20111216
  Receipt Date: 20111208
  Transmission Date: 20120403
  Serious: Yes (Other)
  Sender: FDA-Public Use
  Company Number: IE-PFIZER INC-2011244931

PATIENT
  Age: 65 Year
  Sex: Female
  Weight: 73 kg

DRUGS (8)
  1. NEOCLARITYN [Concomitant]
     Dosage: UNK
     Route: 048
     Dates: start: 20110706
  2. OXYCONTIN [Concomitant]
     Indication: MUSCULOSKELETAL PAIN
     Dosage: 10 MG, 2X/DAY
     Route: 048
     Dates: start: 20110613
  3. TOVIAZ [Suspect]
     Indication: URGE INCONTINENCE
     Dosage: 4 MG, 1X/DAY
     Route: 048
     Dates: start: 20110803, end: 20110809
  4. ZANTAC [Concomitant]
     Indication: GASTROOESOPHAGEAL REFLUX DISEASE
     Dosage: 150 MG, 2X/DAY
     Route: 048
     Dates: start: 20101101
  5. DALMANE [Concomitant]
     Indication: SLEEP DISORDER
     Dosage: 30 MG, UNK
     Route: 048
     Dates: start: 20110130
  6. FLUTICASONE FUROATE [Concomitant]
     Indication: RHINITIS
     Dosage: 1 DF (27.5MCG)
     Route: 045
     Dates: start: 20110805
  7. CITALOPRAM HYDROBROMIDE [Concomitant]
     Indication: DEPRESSION
     Dosage: 20 MG, 1X/DAY
     Route: 048
     Dates: start: 20030502
  8. LEVOTHYROXINE SODIUM [Concomitant]
     Indication: HYPOTHYROIDISM
     Dosage: 75 UG, 1X/DAY
     Route: 048
     Dates: start: 20090605

REACTIONS (5)
  - HYPERSENSITIVITY [None]
  - SWOLLEN TONGUE [None]
  - VOMITING [None]
  - PHARYNGEAL OEDEMA [None]
  - FLUSHING [None]
